FAERS Safety Report 5246137-9 (Version None)
Quarter: 2007Q1

REPORT INFORMATION
  Report Type: 
  Country: None (occurrence: None)
  Receive Date: 20070220
  Receipt Date: 20070201
  Transmission Date: 20070707
  Serious: Yes (Hospitalization)
  Sender: FDA-Public Use
  Company Number: 8021840

PATIENT
  Age: 77 Year
  Sex: Male

DRUGS (1)
  1. KEPPRA [Suspect]
     Dosage: 8 G

REACTIONS (1)
  - COMA [None]
